FAERS Safety Report 8849299 (Version 5)
Quarter: 2013Q2

REPORT INFORMATION
  Report Type: Report from Study
  Country: CA (occurrence: CA)
  Receive Date: 20121019
  Receipt Date: 20130513
  Transmission Date: 20140414
  Serious: Yes (Other)
  Sender: FDA-Public Use
  Company Number: PHHY2012CA003830

PATIENT
  Sex: Female
  Weight: 61.22 kg

DRUGS (2)
  1. EXTAVIA [Suspect]
     Indication: RELAPSING-REMITTING MULTIPLE SCLEROSIS
     Dosage: 8 MIU, QOD
     Route: 058
     Dates: start: 20111129
  2. EXTAVIA [Suspect]
     Dosage: 0.5 MG, UNK
     Route: 058
     Dates: start: 20111129, end: 201303

REACTIONS (6)
  - Oligomenorrhoea [Unknown]
  - Central nervous system lesion [Unknown]
  - Injection site bruising [Recovering/Resolving]
  - Injection site pain [Unknown]
  - Nausea [Unknown]
  - Drug ineffective [Unknown]
